FAERS Safety Report 11652909 (Version 4)
Quarter: 2015Q4

REPORT INFORMATION
  Report Type: Report from Study
  Country: KR (occurrence: KR)
  Receive Date: 20151022
  Receipt Date: 20151112
  Transmission Date: 20160304
  Serious: Yes (Other)
  Sender: FDA-Public Use
  Company Number: PHHY2015KR134312

PATIENT
  Sex: Female

DRUGS (4)
  1. OLDECA [Concomitant]
     Indication: HYPERTENSION
     Dosage: UNK UNK, QD
     Route: 065
  2. RENALMIN [Concomitant]
     Indication: PROTEINURIA
     Dosage: UNK UNK, QD
     Route: 065
     Dates: start: 2015
  3. TASIGNA [Suspect]
     Active Substance: NILOTINIB
     Dosage: 600 MG, BID
     Route: 048
     Dates: start: 20150427
  4. LIPITOR [Concomitant]
     Active Substance: ATORVASTATIN CALCIUM
     Indication: HYPERLIPIDAEMIA
     Dosage: UNK UNK, QD
     Route: 065
     Dates: start: 2015

REACTIONS (3)
  - Cataract [Recovered/Resolved]
  - Dyspepsia [Not Recovered/Not Resolved]
  - Urticaria [Recovered/Resolved]

NARRATIVE: CASE EVENT DATE: 2015
